FAERS Safety Report 10026394 (Version 2)
Quarter: 2014Q1

REPORT INFORMATION
  Report Type: Spontaneous
  Country: US (occurrence: US)
  Receive Date: 20140321
  Receipt Date: 20140321
  Transmission Date: 20141002
  Serious: No
  Sender: FDA-Public Use
  Company Number: US-ALLERGAN-1316051US

PATIENT
  Sex: Female
  Weight: 72.56 kg

DRUGS (4)
  1. LUMIGAN [Suspect]
     Indication: GLAUCOMA
  2. ALPHAGAN [Suspect]
     Indication: GLAUCOMA
  3. COMBIGAN[R] [Suspect]
     Indication: GLAUCOMA
  4. SYNTHROID [Concomitant]
     Indication: HYPOTHYROIDISM
     Dosage: 137 ?G, DAILY
     Route: 048

REACTIONS (2)
  - Chest discomfort [Recovered/Resolved with Sequelae]
  - Abdominal discomfort [Recovered/Resolved with Sequelae]
